FAERS Safety Report 20777124 (Version 1)
Quarter: 2022Q2

REPORT INFORMATION
  Report Type: Spontaneous
  Country: CA (occurrence: CA)
  Receive Date: 20220503
  Receipt Date: 20220503
  Transmission Date: 20220721
  Serious: Yes (Other)
  Sender: FDA-Public Use
  Company Number: CA-JNJFOC-20220452667

PATIENT
  Age: 52 Year
  Sex: Female

DRUGS (4)
  1. REMICADE [Suspect]
     Active Substance: INFLIXIMAB
     Indication: Psoriatic arthropathy
     Route: 042
  2. CELEBREX [Concomitant]
     Active Substance: CELECOXIB
     Route: 048
  3. METHOTREXATE [Concomitant]
     Active Substance: METHOTREXATE
     Route: 048
  4. RABEPRAZOLE [Concomitant]
     Active Substance: RABEPRAZOLE

REACTIONS (6)
  - Enthesopathy [Unknown]
  - Dactylitis [Unknown]
  - Tenosynovitis [Unknown]
  - Inflammation [Unknown]
  - Joint injury [Unknown]
  - Pain [Unknown]
